APPROVED DRUG PRODUCT: ALFUZOSIN HYDROCHLORIDE
Active Ingredient: ALFUZOSIN HYDROCHLORIDE
Strength: 10MG
Dosage Form/Route: TABLET, EXTENDED RELEASE;ORAL
Application: A203192 | Product #001 | TE Code: AB
Applicant: UNICHEM LABORATORIES LTD
Approved: Jan 28, 2016 | RLD: No | RS: No | Type: RX